FAERS Safety Report 7769686-8 (Version None)
Quarter: 2011Q3

REPORT INFORMATION
  Report Type: 
  Country: None (occurrence: None)
  Receive Date: 20110922
  Receipt Date: 20100824
  Transmission Date: 20111222
  Serious: No
  Sender: FDA-Public Use
  Company Number: US-ASTRAZENECA-2008UW04320

PATIENT
  Age: 18801 Day
  Sex: Female
  Weight: 99.8 kg

DRUGS (30)
  1. METOCLOPRAMIDE [Concomitant]
     Dates: start: 20030725
  2. LIPITOR [Concomitant]
     Dates: start: 20070223
  3. ZETIA [Concomitant]
     Dates: start: 20070619
  4. FLOVENT [Concomitant]
     Dates: start: 20070611
  5. SEROQUEL [Suspect]
     Route: 048
     Dates: start: 20030701, end: 20070901
  6. SEROQUEL [Suspect]
     Route: 048
     Dates: start: 20030701, end: 20070901
  7. NEXIUM [Concomitant]
     Dates: start: 20060123
  8. HYDROCODONE BITARTRATE AND ACETAMINOPHEN [Concomitant]
     Dates: start: 20040301
  9. NIASPAN [Concomitant]
     Dates: start: 20070223
  10. RISPERDAL [Concomitant]
     Indication: DEPRESSION
     Dates: start: 20030103, end: 20030423
  11. SEROQUEL [Suspect]
     Indication: DEPRESSION
     Route: 048
     Dates: start: 20030621, end: 20070926
  12. LEVOTHYROXINE SODIUM [Concomitant]
     Dates: start: 20061031
  13. SEROQUEL [Suspect]
     Route: 048
     Dates: start: 20060701
  14. SEROQUEL [Suspect]
     Route: 048
     Dates: start: 20060701
  15. CLONAZEPAM [Concomitant]
     Dates: start: 20060901
  16. AVANDIA [Concomitant]
     Dates: start: 20070222
  17. NITROFURANTOIN [Concomitant]
     Dates: start: 20070606
  18. PRILOSEC [Concomitant]
     Dates: start: 20070813
  19. SEROQUEL [Suspect]
     Indication: ANXIETY
     Route: 048
     Dates: start: 20030621, end: 20070926
  20. SEROQUEL [Suspect]
     Route: 048
     Dates: start: 20030701, end: 20070901
  21. SEROQUEL [Suspect]
     Indication: SLEEP DISORDER
     Route: 048
     Dates: start: 20030621, end: 20070926
  22. SEROQUEL [Suspect]
     Route: 048
     Dates: start: 20060701
  23. RISPERDAL [Concomitant]
     Indication: ANXIETY
     Dates: start: 20030103, end: 20030423
  24. EFFEXOR [Concomitant]
     Dates: start: 20030621
  25. DETROL [Concomitant]
     Dates: start: 20050209
  26. HYZAAR [Concomitant]
     Dates: start: 20050321
  27. NABUMETONE [Concomitant]
     Dates: start: 20041229
  28. SPIRIVA [Concomitant]
     Dates: start: 20050321
  29. OXYCODONE HCL AND ACETAMINOPHEN [Concomitant]
     Dosage: 5/325
     Dates: start: 20040617
  30. ALBUTEROL [Concomitant]
     Dates: start: 20070611

REACTIONS (6)
  - DIABETIC COMPLICATION [None]
  - TYPE 2 DIABETES MELLITUS [None]
  - ARTHROPATHY [None]
  - BLOOD TRIGLYCERIDES INCREASED [None]
  - WEIGHT INCREASED [None]
  - OBESITY [None]
